FAERS Safety Report 16945058 (Version 1)
Quarter: 2019Q4

REPORT INFORMATION
  Report Type: Spontaneous
  Country: ZA (occurrence: ZA)
  Receive Date: 20191022
  Receipt Date: 20191022
  Transmission Date: 20200122
  Serious: Yes (Death)
  Sender: FDA-Public Use
  Company Number: ZA-PFIZER INC-2019455790

PATIENT
  Age: 27 Year
  Sex: Female

DRUGS (2)
  1. TYGACIL [Suspect]
     Active Substance: TIGECYCLINE
     Dosage: 50 MG, DAILY
  2. TYGACIL [Suspect]
     Active Substance: TIGECYCLINE
     Dosage: 100 MG, LOADING DOSE

REACTIONS (1)
  - Death [Fatal]
